FAERS Safety Report 15481717 (Version 2)
Quarter: 2018Q4

REPORT INFORMATION
  Report Type: Spontaneous
  Country: JP (occurrence: JP)
  Receive Date: 20181010
  Receipt Date: 20181016
  Transmission Date: 20190205
  Serious: Yes (Other)
  Sender: FDA-Public Use
  Company Number: JP-ROCHE-2195112

PATIENT
  Sex: Male

DRUGS (1)
  1. GANCICLOVIR. [Suspect]
     Active Substance: GANCICLOVIR
     Indication: CONGENITAL CYTOMEGALOVIRUS INFECTION
     Route: 065

REACTIONS (5)
  - Epilepsy [Not Recovered/Not Resolved]
  - Developmental delay [Not Recovered/Not Resolved]
  - Product use issue [Unknown]
  - Deafness neurosensory [Not Recovered/Not Resolved]
  - Quadriparesis [Unknown]
